FAERS Safety Report 7008065-8 (Version None)
Quarter: 2010Q3

REPORT INFORMATION
  Report Type: 
  Country: None (occurrence: None)
  Receive Date: 20100922
  Receipt Date: 20100907
  Transmission Date: 20110219
  Serious: No
  Sender: FDA-Public Use
  Company Number: US-B.I. PHARMACEUTICALS,INC./RIDGEFIELD-2010-BP-10204BP

PATIENT
  Sex: Female

DRUGS (11)
  1. SPIRIVA [Suspect]
     Indication: EMPHYSEMA
     Dosage: 18 MCG
     Route: 055
     Dates: start: 20100801
  2. TRAZODONE HCL [Concomitant]
     Indication: FIBROMYALGIA
     Dosage: 200 MG
     Route: 048
  3. AMITRIPTYLINE HCL [Concomitant]
     Indication: FIBROMYALGIA
     Dosage: 20 MG
     Route: 048
  4. ATENOLOL [Concomitant]
     Indication: HYPERTENSION
     Dosage: 100 MG
     Route: 048
  5. ENALAPRIL MALEATE [Concomitant]
     Indication: HYPERTENSION
     Dosage: 40 MG
     Route: 048
  6. AMLODIPINE [Concomitant]
     Indication: HYPERTENSION
     Dosage: 10 MG
     Route: 048
  7. METHSCOPOLAM [Concomitant]
     Indication: IRRITABLE BOWEL SYNDROME
     Route: 048
  8. METHSCOPOLAM [Concomitant]
     Indication: COLITIS
  9. HYOSCYAMINE [Concomitant]
     Indication: IRRITABLE BOWEL SYNDROME
     Route: 048
  10. HYOSCYAMINE [Concomitant]
     Indication: COLITIS
  11. LUMIGAN [Concomitant]
     Indication: GLAUCOMA
     Route: 031

REACTIONS (2)
  - DYSPHONIA [None]
  - PRURITUS [None]
